FAERS Safety Report 9365652 (Version 1)
Quarter: 2013Q2

REPORT INFORMATION
  Report Type: Spontaneous
  Country: US (occurrence: None)
  Receive Date: 20130624
  Receipt Date: 20130624
  Transmission Date: 20140414
  Serious: Yes (Hospitalization)
  Sender: FDA-Public Use
  Company Number: None

PATIENT
  Age: 40 Year
  Sex: Female

DRUGS (1)
  1. VELIVET [Suspect]
     Indication: CONTRACEPTION

REACTIONS (3)
  - Pulmonary mass [None]
  - Deep vein thrombosis [None]
  - Pulmonary embolism [None]
